FAERS Safety Report 10725190 (Version 1)
Quarter: 2015Q1

REPORT INFORMATION
  Report Type: Spontaneous
  Country: US (occurrence: US)
  Receive Date: 20150120
  Receipt Date: 20150120
  Transmission Date: 20150721
  Serious: No
  Sender: FDA-Public Use
  Company Number: US-ASTRAZENECA-2014SE90472

PATIENT
  Sex: Female

DRUGS (3)
  1. SYMBICORT [Suspect]
     Active Substance: BUDESONIDE\FORMOTEROL FUMARATE DIHYDRATE
     Dosage: UNKNOWN, 2 PUFFSTWO TIMES A DAY
     Route: 055
  2. FLUTICASONE NASAL SPRAY [Concomitant]
     Active Substance: FLUTICASONE\FLUTICASONE PROPIONATE
  3. PRO AIR HFA [Concomitant]

REACTIONS (5)
  - Cognitive disorder [Unknown]
  - Nasal congestion [Unknown]
  - Intentional product misuse [Unknown]
  - Dyspnoea [Recovering/Resolving]
  - Confusional state [Unknown]
